FAERS Safety Report 17076630 (Version 2)
Quarter: 2020Q1

REPORT INFORMATION
  Report Type: Spontaneous
  Country: US (occurrence: US)
  Receive Date: 20191126
  Receipt Date: 20200103
  Transmission Date: 20200409
  Serious: No
  Sender: FDA-Public Use
  Company Number: US-SA-2019SA326401

PATIENT
  Age: 39 Year
  Sex: Female
  Weight: 74.83 kg

DRUGS (9)
  1. ZYRTEC [Concomitant]
     Active Substance: CETIRIZINE HYDROCHLORIDE
  2. DULERA [Concomitant]
     Active Substance: FORMOTEROL FUMARATE DIHYDRATE\MOMETASONE FUROATE
  3. DESVENLAFAXINE SUCCINATE. [Concomitant]
     Active Substance: DESVENLAFAXINE SUCCINATE
  4. LEVOFLOXACINE [LEVOFLOXACIN HEMIHYDRATE] [Concomitant]
     Active Substance: LEVOFLOXACIN
  5. PREDNISONE. [Concomitant]
     Active Substance: PREDNISONE
  6. DUPIXENT [Suspect]
     Active Substance: DUPILUMAB
     Indication: CHRONIC RHINOSINUSITIS WITH NASAL POLYPS
     Dosage: 300 MG, QOW
     Route: 058
     Dates: start: 20191017
  7. DOXYCYCLINE HYCLATE. [Concomitant]
     Active Substance: DOXYCYCLINE HYCLATE
  8. FLONASE ALLERGY RELIEF [Concomitant]
     Active Substance: FLUTICASONE PROPIONATE
  9. SINGULAIR [Concomitant]
     Active Substance: MONTELUKAST SODIUM

REACTIONS (3)
  - Hyposmia [Unknown]
  - Headache [Unknown]
  - Hypogeusia [Unknown]
